FAERS Safety Report 7646912-7 (Version None)
Quarter: 2011Q3

REPORT INFORMATION
  Report Type: 
  Country: None (occurrence: None)
  Receive Date: 20110801
  Receipt Date: 20110725
  Transmission Date: 20111222
  Serious: Yes (Death, Other)
  Sender: FDA-Public Use
  Company Number: US-TEVA-292786USA

PATIENT
  Age: 33 Year
  Sex: Male

DRUGS (4)
  1. ACETAMINOPHEN AND OXYCODONE HCL [Suspect]
  2. QUETIAPINE [Suspect]
  3. CARISOPRODOL [Suspect]
  4. NORDAZEPAM [Suspect]

REACTIONS (4)
  - DRUG ABUSE [None]
  - ENCEPHALOPATHY [None]
  - CONGESTIVE CARDIOMYOPATHY [None]
  - TOXICITY TO VARIOUS AGENTS [None]
